FAERS Safety Report 5085338-X (Version None)
Quarter: 2006Q3

REPORT INFORMATION
  Report Type: 
  Country: None (occurrence: None)
  Receive Date: 20060822
  Receipt Date: 20060815
  Transmission Date: 20061208
  Serious: Yes (Other)
  Sender: FDA-Public Use
  Company Number: BE-AVENTIS-200616849US

PATIENT
  Age: 43 Year
  Sex: Male

DRUGS (1)
  1. KETEK [Suspect]
     Dosage: DOSE: UNK

REACTIONS (1)
  - TOXIC EPIDERMAL NECROLYSIS [None]
